FAERS Safety Report 19383938 (Version 1)
Quarter: 2021Q2

REPORT INFORMATION
  Report Type: Spontaneous
  Country: US (occurrence: US)
  Receive Date: 20210608
  Receipt Date: 20210608
  Transmission Date: 20210717
  Serious: No
  Sender: FDA-Public Use
  Company Number: US-P+L DEVELOPMENTS OF NEWYORK CORPORATION-2112459

PATIENT
  Age: 51 Year
  Sex: Female
  Weight: 120.45 kg

DRUGS (1)
  1. DOCOSANOL [Suspect]
     Active Substance: DOCOSANOL
     Indication: ORAL HERPES
     Route: 062
     Dates: start: 20210504

REACTIONS (1)
  - Drug ineffective [Unknown]

NARRATIVE: CASE EVENT DATE: 20210517
